FAERS Safety Report 9158946 (Version 1)
Quarter: 2013Q1

REPORT INFORMATION
  Report Type: Spontaneous
  Country: US (occurrence: US)
  Receive Date: 20130313
  Receipt Date: 20130313
  Transmission Date: 20140127
  Serious: Yes (Other)
  Sender: FDA-Public Use
  Company Number: US-BAYER-2013-028699

PATIENT
  Age: 46 Year
  Sex: Female
  Weight: 63.04 kg

DRUGS (2)
  1. BETASERON [Suspect]
     Dosage: 0.3 MG, QOD
     Route: 058
  2. VITAMIN D [Concomitant]
     Dosage: 50000 IU, UNK

REACTIONS (5)
  - Memory impairment [Unknown]
  - Hemiparesis [Unknown]
  - Influenza like illness [Unknown]
  - Fatigue [Unknown]
  - Injection site urticaria [Unknown]
